FAERS Safety Report 9706546 (Version 1)
Quarter: 2013Q4

REPORT INFORMATION
  Report Type: Spontaneous
  Country: US (occurrence: US)
  Receive Date: 20131125
  Receipt Date: 20131125
  Transmission Date: 20140711
  Serious: Yes (Hospitalization, Disabling, Other)
  Sender: FDA-Public Use
  Company Number: US-MERCK-1311USA009257

PATIENT
  Sex: Female

DRUGS (6)
  1. JANUVIA [Suspect]
     Indication: BLOOD GLUCOSE
     Dosage: 100 MG, QD
     Route: 048
     Dates: start: 2012, end: 201306
  2. LOSTARTIN HCT [Concomitant]
  3. LEVOTHYROXINE [Concomitant]
  4. GLIPAMIDE [Concomitant]
  5. SIMVASTATIN [Concomitant]
  6. METFORMIN [Concomitant]

REACTIONS (3)
  - Bladder cancer [Recovering/Resolving]
  - Vaginal haemorrhage [Recovering/Resolving]
  - Gait disturbance [Recovering/Resolving]
